FAERS Safety Report 7155026-4 (Version None)
Quarter: 2010Q4

REPORT INFORMATION
  Report Type: 
  Country: None (occurrence: None)
  Receive Date: 20101214
  Receipt Date: 20091210
  Transmission Date: 20110411
  Serious: No
  Sender: FDA-Public Use
  Company Number: US-AMGEN-KDL375075

PATIENT

DRUGS (7)
  1. ENBREL [Suspect]
     Indication: RHEUMATOID ARTHRITIS
     Dosage: 50 MG, QWK
     Route: 058
     Dates: start: 20090926
  2. HYDROXYCHLOROQUINE SULFATE [Concomitant]
     Dosage: UNK UNK, UNK
  3. METHOTREXATE [Concomitant]
  4. LEVOTHYROXINE SODIUM [Concomitant]
  5. METOPROLOL [Concomitant]
  6. FOLIC ACID [Concomitant]
  7. IBUPROFEN [Concomitant]

REACTIONS (2)
  - AMENORRHOEA [None]
  - METRORRHAGIA [None]
